FAERS Safety Report 16251313 (Version 2)
Quarter: 2019Q2

REPORT INFORMATION
  Report Type: Spontaneous
  Country: SI (occurrence: SI)
  Receive Date: 20190429
  Receipt Date: 20190502
  Transmission Date: 20190711
  Serious: Yes (Hospitalization)
  Sender: FDA-Public Use
  Company Number: SI-BAYER-2019-078608

PATIENT
  Age: 45 Year
  Sex: Female
  Weight: 66 kg

DRUGS (2)
  1. EUTHYROX [Concomitant]
     Active Substance: LEVOTHYROXINE SODIUM
  2. CLIMARA [Suspect]
     Active Substance: ESTRADIOL
     Indication: MENOPAUSAL DISORDER
     Dosage: 1 DF, OW
     Route: 062
     Dates: start: 201809, end: 201812

REACTIONS (3)
  - Ischaemic stroke [Recovered/Resolved]
  - Migraine with aura [Recovered/Resolved]
  - Hemiparesis [Recovered/Resolved]

NARRATIVE: CASE EVENT DATE: 20181222
